FAERS Safety Report 7728430-0 (Version None)
Quarter: 2011Q3

REPORT INFORMATION
  Report Type: 
  Country: None (occurrence: None)
  Receive Date: 20110905
  Receipt Date: 20110829
  Transmission Date: 20111222
  Serious: Yes (Death)
  Sender: FDA-Public Use
  Company Number: CN-BRISTOL-MYERS SQUIBB COMPANY-16013260

PATIENT
  Age: 73 Year
  Sex: Male

DRUGS (4)
  1. BLEOMYCIN SULFATE [Suspect]
     Indication: HODGKIN'S DISEASE
     Route: 042
  2. VINCRISTINE [Suspect]
     Indication: HODGKIN'S DISEASE
     Route: 042
  3. PIRARUBICIN [Suspect]
     Indication: HODGKIN'S DISEASE
     Route: 042
  4. DACARBAZINE [Suspect]
     Indication: HODGKIN'S DISEASE
     Route: 042

REACTIONS (1)
  - LUNG INFECTION [None]
